FAERS Safety Report 6897946-1 (Version None)
Quarter: 2010Q3

REPORT INFORMATION
  Report Type: 
  Country: None (occurrence: None)
  Receive Date: 20100802
  Receipt Date: 20070803
  Transmission Date: 20110219
  Serious: No
  Sender: FDA-Public Use
  Company Number: US-PFIZER INC-2007065824

PATIENT
  Sex: Female
  Weight: 61.2 kg

DRUGS (5)
  1. LYRICA [Suspect]
     Indication: HERPES ZOSTER
     Dates: start: 20070401
  2. VITAMINS [Concomitant]
  3. HERBAL NOS/MINERALS NOS [Concomitant]
  4. THYROID TAB [Concomitant]
  5. ALL OTHER THERAPEUTIC PRODUCTS [Concomitant]

REACTIONS (2)
  - INSOMNIA [None]
  - WEIGHT INCREASED [None]
